FAERS Safety Report 6681874-0 (Version None)
Quarter: 2010Q2

REPORT INFORMATION
  Report Type: 
  Country: None (occurrence: None)
  Receive Date: 20100412
  Receipt Date: 20100326
  Transmission Date: 20101027
  Serious: Yes (Hospitalization, Other)
  Sender: FDA-Public Use
  Company Number: 2010SCPR000367

PATIENT
  Age: 68 Year
  Sex: Female

DRUGS (3)
  1. PERGOLIDE MESYLATE [Suspect]
     Indication: PARKINSON'S DISEASE
     Dosage: 750 UG/D
  2. PRAMIPEXOLE DIHYDROCHLORIDE [Suspect]
     Indication: PARKINSON'S DISEASE
     Dosage: 3 MG, QD
  3. LEVODOPA W/BENSERAZIDE (BENSERAZIDE, LEVODOPA) [Concomitant]

REACTIONS (3)
  - CONDITION AGGRAVATED [None]
  - PARKINSON'S DISEASE [None]
  - TORTICOLLIS [None]
